FAERS Safety Report 10076755 (Version 1)
Quarter: 2014Q2

REPORT INFORMATION
  Report Type: Spontaneous
  Country: US (occurrence: US)
  Receive Date: 20140414
  Receipt Date: 20140414
  Transmission Date: 20141212
  Serious: Yes (Other)
  Sender: FDA-Public Use
  Company Number: US-B.I. PHARMACEUTICALS,INC./RIDGEFIELD-2014-BI-16772GD

PATIENT
  Age: 5 Year
  Sex: Female
  Weight: 16.3 kg

DRUGS (8)
  1. DIPYRIDAMOLE [Suspect]
     Indication: THROMBOSIS PROPHYLAXIS
     Route: 048
  2. ASPIRIN [Suspect]
     Indication: THROMBOSIS PROPHYLAXIS
     Route: 065
  3. DEXTRAN [Suspect]
     Indication: THROMBOSIS PROPHYLAXIS
     Route: 042
  4. ECLUZIMAB [Concomitant]
     Indication: PRODUCT USED FOR UNKNOWN INDICATION
     Route: 042
  5. ANTI-THYMOCYTE [Concomitant]
     Indication: IMMUNOSUPPRESSANT DRUG THERAPY
     Dosage: 5 DOSES OF 1.5 MG/KG/DOSE
     Route: 065
  6. METHYLPREDNISOLONE [Concomitant]
     Indication: IMMUNOSUPPRESSANT DRUG THERAPY
     Dosage: 5 DOSES OF 1 MG/KG/DOSE
     Route: 065
  7. TACROLIMUS [Concomitant]
     Indication: IMMUNOSUPPRESSANT DRUG THERAPY
     Dosage: TARGET TROUGH: 12-15 NG/ML
     Route: 065
  8. MYCOPHENOLATE MOFETIL [Concomitant]
     Indication: IMMUNOSUPPRESSANT DRUG THERAPY
     Dosage: 600 MG/ME2/DOSE
     Route: 065

REACTIONS (3)
  - Pancreatitis [Unknown]
  - Hepatic haematoma [Unknown]
  - Pyrexia [Unknown]
